FAERS Safety Report 18928559 (Version 2)
Quarter: 2021Q2

REPORT INFORMATION
  Report Type: Spontaneous
  Country: FR (occurrence: FR)
  Receive Date: 20210223
  Receipt Date: 20210427
  Transmission Date: 20210717
  Serious: Yes (Other)
  Sender: FDA-Public Use
  Company Number: FR-PURDUE-USA-2021-0215854

PATIENT
  Sex: Female
  Weight: 65 kg

DRUGS (21)
  1. LOVENOX [Concomitant]
     Active Substance: ENOXAPARIN SODIUM
     Dosage: 1 UNIT, Q12H [0.6 ML,1 PRE?FILLED SYRINGE X EVERY 12 HOURS]
     Route: 058
  2. ATARAX [Concomitant]
     Active Substance: HYDROXYZINE HYDROCHLORIDE
     Dosage: 0.5 UNIT, PRN [0.5 TABLET, IF NECESSARY]
     Route: 048
  3. MOVICOL PLAIN [Concomitant]
     Active Substance: POLYETHYLENE GLYCOL 3350\POTASSIUM CHLORIDE\SODIUM BICARBONATE\SODIUM CHLORIDE
     Dosage: 2 UNIT, DAILY [2 SACHET, MORNING]
     Route: 048
  4. PROPRANOLOL [Concomitant]
     Active Substance: PROPRANOLOL HYDROCHLORIDE
     Indication: PALPITATIONS
  5. COVERSYL                           /00790703/ [Concomitant]
     Active Substance: PERINDOPRIL
     Dosage: 1 UNIT, DAILY [1DF, QD (MORNING)]
     Route: 048
  6. OXYNORM [Suspect]
     Active Substance: OXYCODONE HYDROCHLORIDE
     Indication: PRODUCT USED FOR UNKNOWN INDICATION
     Dosage: UNK [STRENGTH 5MG]
     Route: 065
     Dates: start: 202006
  7. MYOZYME [Suspect]
     Active Substance: ALGLUCOSIDASE ALFA
     Indication: GLYCOGEN STORAGE DISEASE TYPE II
     Dosage: 20 MG/KG, Q15D
     Route: 041
     Dates: start: 20100512
  8. MYOZYME [Suspect]
     Active Substance: ALGLUCOSIDASE ALFA
     Dosage: 20 MG/KG, Q15D
     Route: 041
     Dates: start: 20101015, end: 20200526
  9. ECONAZOLE. [Concomitant]
     Active Substance: ECONAZOLE NITRATE
     Indication: FUNGAL INFECTION
     Dosage: UNK
  10. AVLOCARDYL                         /00030001/ [Concomitant]
     Active Substance: PROPRANOLOL HYDROCHLORIDE
  11. LANSOPRAZOLE. [Concomitant]
     Active Substance: LANSOPRAZOLE
     Dosage: 1 UNIT, DAILY [1DF, QD (EVENING)]
     Route: 048
  12. PARACETAMOL [Concomitant]
     Active Substance: ACETAMINOPHEN
     Dosage: 1 UNIT, Q6H [1DF (TABLET), Q6H]
     Route: 048
  13. PRIMPERAN [Concomitant]
     Active Substance: METOCLOPRAMIDE HYDROCHLORIDE
     Dosage: 1 UNIT, PRN [1 TABLET IF NECESSARY]
     Route: 048
  14. TRAMADOL. [Concomitant]
     Active Substance: TRAMADOL
  15. INFLUENZA VACCINE [Concomitant]
     Active Substance: INFLUENZA VIRUS VACCINE
  16. EDUCTYL [Concomitant]
     Active Substance: POTASSIUM BITARTRATE\SODIUM BICARBONATE
     Dosage: 1 UNIT, DAILY [1DF, QD/1 CP/MOR]
     Route: 048
  17. COVERSYL                           /00790703/ [Concomitant]
     Active Substance: PERINDOPRIL
     Dosage: 5 MG, DAILY [5 MG, 0.5 CP/MORNING]
     Route: 048
  18. PREVNAR 13 [Concomitant]
     Active Substance: PNEUMOCOCCAL 13-VALENT CONJUGATE VACCINE
  19. PROPRANOLOL [Concomitant]
     Active Substance: PROPRANOLOL HYDROCHLORIDE
     Indication: HEADACHE
     Dosage: 0.5 UNIT, DAILY [0.5DF, QD]
     Route: 048
  20. PNEUMOVAX 23 [Concomitant]
     Active Substance: PNEUMOCOCCAL VACCINE, POLYVALENT 23
  21. PERINDOPRIL [Concomitant]
     Active Substance: PERINDOPRIL

REACTIONS (26)
  - Pain in extremity [Recovering/Resolving]
  - Loss of personal independence in daily activities [Unknown]
  - Nasal congestion [Unknown]
  - Deep vein thrombosis [Recovering/Resolving]
  - Dry mouth [Unknown]
  - Dyspnoea [Unknown]
  - Fall [Not Recovered/Not Resolved]
  - Abdominal wall oedema [Unknown]
  - Haematoma [Unknown]
  - Asthenia [Unknown]
  - Pain [Recovering/Resolving]
  - Fracture displacement [Not Recovered/Not Resolved]
  - Musculoskeletal disorder [Not Recovered/Not Resolved]
  - Arthralgia [Unknown]
  - Supraventricular extrasystoles [Recovering/Resolving]
  - Oropharyngeal pain [Recovering/Resolving]
  - Headache [Unknown]
  - Pelvic fracture [Recovering/Resolving]
  - Oedema peripheral [Not Recovered/Not Resolved]
  - Walking aid user [Unknown]
  - Balance disorder [Unknown]
  - Cough [Recovering/Resolving]
  - Odynophagia [Unknown]
  - Dysphagia [Unknown]
  - Perineal pain [Unknown]
  - Nausea [Unknown]

NARRATIVE: CASE EVENT DATE: 2017
